FAERS Safety Report 5688181-3 (Version None)
Quarter: 2008Q1

REPORT INFORMATION
  Report Type: 
  Country: None (occurrence: None)
  Receive Date: 20080327
  Receipt Date: 20080313
  Transmission Date: 20080703
  Serious: Yes (Death)
  Sender: FDA-Public Use
  Company Number: POMP-1000072

PATIENT
  Age: 12 Month
  Sex: 0

DRUGS (1)
  1. MYOZYME [Suspect]
     Indication: GLYCOGEN STORAGE DISEASE TYPE II
     Dosage: Q2W, INTRAVENOUS
     Route: 042
     Dates: start: 20070606, end: 20071128

REACTIONS (5)
  - CONDITION AGGRAVATED [None]
  - GENERAL PHYSICAL HEALTH DETERIORATION [None]
  - GLYCOGEN STORAGE DISEASE TYPE II [None]
  - MUSCULAR WEAKNESS [None]
  - RESPIRATORY FAILURE [None]
